FAERS Safety Report 7386778-6 (Version None)
Quarter: 2011Q1

REPORT INFORMATION
  Report Type: 
  Country: None (occurrence: None)
  Receive Date: 20110331
  Receipt Date: 20110323
  Transmission Date: 20110831
  Serious: Yes (Other)
  Sender: FDA-Public Use
  Company Number: B0709510A

PATIENT
  Sex: Female

DRUGS (1)
  1. ALLI [Suspect]
     Dosage: 60MG THREE TIMES PER DAY
     Route: 065
     Dates: start: 20110319, end: 20110320

REACTIONS (3)
  - ERYTHEMA [None]
  - SKIN REACTION [None]
  - PRURITUS GENERALISED [None]
